FAERS Safety Report 5904131-6 (Version None)
Quarter: 2008Q3

REPORT INFORMATION
  Report Type: 
  Country: None (occurrence: None)
  Receive Date: 20080919
  Receipt Date: 20080603
  Transmission Date: 20090109
  Serious: Yes (Other)
  Sender: FDA-Public Use
  Company Number: US-WYE-H04363508

PATIENT
  Age: 46 Year
  Sex: Male
  Weight: 90.8 kg

DRUGS (4)
  1. PRISTIQ [Suspect]
     Indication: DEPRESSION
     Dosage: 50 MG 1X PER 1 TOT,ORAL
     Route: 048
     Dates: start: 20080602, end: 20080602
  2. LAMICTAL [Concomitant]
  3. RISPERDAL [Concomitant]
  4. WELLBUTRIN [Suspect]
     Dosage: ^400 MG^

REACTIONS (6)
  - AGITATION [None]
  - ANXIETY [None]
  - DIARRHOEA [None]
  - HOT FLUSH [None]
  - RESTLESSNESS [None]
  - SEROTONIN SYNDROME [None]
